FAERS Safety Report 18232113 (Version 1)
Quarter: 2020Q3

REPORT INFORMATION
  Report Type: Spontaneous
  Country: US (occurrence: US)
  Receive Date: 20200903
  Receipt Date: 20200903
  Transmission Date: 20201103
  Serious: Yes (Hospitalization)
  Sender: FDA-Public Use
  Company Number: None

PATIENT
  Age: 72 Year
  Sex: Female

DRUGS (12)
  1. AUBAGIO [Concomitant]
     Active Substance: TERIFLUNOMIDE
  2. B?COMPL/B?12 [Concomitant]
  3. CEPHALEXIN. [Concomitant]
     Active Substance: CEPHALEXIN
  4. TRAMADOL HCL [Concomitant]
     Active Substance: TRAMADOL HYDROCHLORIDE
  5. MULTIVITIAMIN ADULTS [Concomitant]
  6. VITAMIN C [Concomitant]
     Active Substance: ASCORBIC ACID
  7. MUPIROCIN. [Concomitant]
     Active Substance: MUPIROCIN
  8. NITROFURANTIN [Concomitant]
     Active Substance: NITROFURANTOIN
  9. DALFAMPRIDINE 10MG ER TAB [Suspect]
     Active Substance: DALFAMPRIDINE
     Indication: MULTIPLE SCLEROSIS
     Dosage: ?          OTHER DOSE:1 SYR;?
     Route: 058
     Dates: start: 20180828
  10. BIOTIN [Concomitant]
     Active Substance: BIOTIN
  11. REBIF [Concomitant]
     Active Substance: INTERFERON BETA-1A
  12. PEG?3350?/KCL SOL/SODIUM [Concomitant]

REACTIONS (2)
  - Bladder disorder [None]
  - Fall [None]

NARRATIVE: CASE EVENT DATE: 20200902
